FAERS Safety Report 6135811-8 (Version None)
Quarter: 2009Q1

REPORT INFORMATION
  Report Type: 
  Country: None (occurrence: None)
  Receive Date: 20090327
  Receipt Date: 20090313
  Transmission Date: 20090719
  Serious: Yes (Other)
  Sender: FDA-Public Use
  Company Number: US-GENENTECH-279224

PATIENT
  Age: 55 Year
  Sex: Male

DRUGS (3)
  1. XOLAIR [Suspect]
     Indication: ASTHMA
     Dosage: 30 U, QD
  2. INSULIN GLARGINE [Suspect]
     Indication: DIABETES MELLITUS INADEQUATE CONTROL
     Route: 058
  3. INSULIN DETEMIR [Suspect]
     Indication: DIABETES MELLITUS INADEQUATE CONTROL
     Route: 058

REACTIONS (3)
  - ASTHMA [None]
  - HYPERSENSITIVITY [None]
  - INJECTION SITE PRURITUS [None]
